FAERS Safety Report 4496764-1 (Version None)
Quarter: 2004Q4

REPORT INFORMATION
  Report Type: 
  Country: None (occurrence: None)
  Receive Date: 20041109
  Receipt Date: 20040707
  Transmission Date: 20050328
  Serious: Yes (Hospitalization)
  Sender: FDA-Public Use
  Company Number: JP-ROCHE-373513

PATIENT
  Age: 72 Year
  Sex: Male

DRUGS (9)
  1. ROCEPHIN [Suspect]
     Indication: PNEUMONIA
     Route: 041
     Dates: start: 20030602, end: 20030602
  2. ROCEPHIN [Suspect]
     Route: 041
     Dates: start: 20030603, end: 20030604
  3. MINOMYCIN [Suspect]
     Indication: PNEUMONIA
     Route: 041
     Dates: start: 20030605, end: 20030608
  4. MINOMYCIN [Suspect]
     Route: 041
     Dates: start: 20030609, end: 20030609
  5. MAXIPIME [Suspect]
     Indication: PNEUMONIA
     Route: 041
     Dates: start: 20030530, end: 20030530
  6. MAXIPIME [Suspect]
     Route: 041
     Dates: start: 20030531, end: 20030531
  7. MAXIPIME [Suspect]
     Route: 041
     Dates: start: 20030601, end: 20030601
  8. ZITHROMAX [Suspect]
     Indication: PNEUMONIA
     Route: 048
     Dates: start: 20030530, end: 20030601
  9. PAZUFLOXACIN MESILATE [Suspect]
     Indication: PNEUMONIA
     Dosage: DRUG NAME REPORTED AS PASIL
     Route: 041
     Dates: start: 20030602, end: 20030602

REACTIONS (9)
  - ANAEMIA HAEMOLYTIC AUTOIMMUNE [None]
  - CONDITION AGGRAVATED [None]
  - DISSEMINATED INTRAVASCULAR COAGULATION [None]
  - DRUG INEFFECTIVE [None]
  - HAEMOLYTIC ANAEMIA [None]
  - PALLOR [None]
  - PALPITATIONS [None]
  - PLATELET COUNT INCREASED [None]
  - PNEUMONIA [None]
